FAERS Safety Report 20805921 (Version 1)
Quarter: 2022Q2

REPORT INFORMATION
  Report Type: Spontaneous
  Country: US (occurrence: US)
  Receive Date: 20220510
  Receipt Date: 20220510
  Transmission Date: 20220720
  Serious: No
  Sender: FDA-Public Use
  Company Number: US-ALLERGAN-2206680US

PATIENT
  Age: 47 Year
  Sex: Male
  Weight: 72.562 kg

DRUGS (1)
  1. VUITY [Suspect]
     Active Substance: PILOCARPINE HYDROCHLORIDE
     Indication: Presbyopia
     Dosage: 1 GTT, QD
     Route: 047
     Dates: start: 20220115, end: 20220302

REACTIONS (2)
  - Photophobia [Recovered/Resolved]
  - Visual impairment [Recovered/Resolved]
